FAERS Safety Report 6086756-3 (Version None)
Quarter: 2009Q1

REPORT INFORMATION
  Report Type: 
  Country: None (occurrence: None)
  Receive Date: 20090223
  Receipt Date: 20090211
  Transmission Date: 20090719
  Serious: Yes (Other)
  Sender: FDA-Public Use
  Company Number: GB-JNJFOC-20080702449

PATIENT
  Age: 80 Year
  Sex: Female
  Weight: 58 kg

DRUGS (14)
  1. REMICADE [Suspect]
     Indication: RHEUMATOID ARTHRITIS
     Route: 042
  2. PREDNISOLONE [Concomitant]
  3. CALCIUM D3 [Concomitant]
  4. CODEINE PHOSPHATE [Concomitant]
  5. FELODIPINE [Concomitant]
  6. FERROUS SULFATE TAB [Concomitant]
  7. MELOXICAM [Concomitant]
  8. MOVELAT [Concomitant]
  9. PARACETAMOL [Concomitant]
  10. PROCHLORPERAZINE [Concomitant]
  11. RAMIPRIL [Concomitant]
  12. RISEDRONATE SODIUM [Concomitant]
  13. METHOTREXATE [Concomitant]
  14. FOLIC ACID [Concomitant]

REACTIONS (1)
  - SKIN ULCER [None]
